FAERS Safety Report 18425726 (Version 1)
Quarter: 2020Q4

REPORT INFORMATION
  Report Type: Spontaneous
  Country: US (occurrence: US)
  Receive Date: 20201025
  Receipt Date: 20201025
  Transmission Date: 20210114
  Serious: Yes (Other)
  Sender: FDA-Public Use
  Company Number: None

PATIENT
  Age: 73 Year
  Sex: Male
  Weight: 81.9 kg

DRUGS (11)
  1. OMEPRAZOLE. [Concomitant]
     Active Substance: OMEPRAZOLE
  2. FENUGREEK [Concomitant]
     Active Substance: FENUGREEK SEED
  3. SOMVASTATIN [Concomitant]
  4. VIT B-12 [Concomitant]
  5. FINASTERIDE 5 MG [Suspect]
     Active Substance: FINASTERIDE
     Indication: BENIGN PROSTATIC HYPERPLASIA
     Dosage: ?          QUANTITY:1 TABLET(S);?
     Route: 048
     Dates: start: 20200924, end: 20201020
  6. CINNAMON. [Concomitant]
     Active Substance: CINNAMON
  7. TAMSULOSIN [Concomitant]
     Active Substance: TAMSULOSIN
  8. FINASTERIDE. [Concomitant]
     Active Substance: FINASTERIDE
  9. VIT D [Concomitant]
     Active Substance: VITAMIN D NOS
  10. IRON [Concomitant]
     Active Substance: IRON
  11. LISINOPRIL. [Concomitant]
     Active Substance: LISINOPRIL

REACTIONS (6)
  - Bone pain [None]
  - Toxicity to various agents [None]
  - Arthralgia [None]
  - Myalgia [None]
  - Gait disturbance [None]
  - Musculoskeletal stiffness [None]

NARRATIVE: CASE EVENT DATE: 20201020
